FAERS Safety Report 8762739 (Version 2)
Quarter: 2013Q4

REPORT INFORMATION
  Report Type: Spontaneous
  Country: US (occurrence: US)
  Receive Date: 20120830
  Receipt Date: 20131101
  Transmission Date: 20140711
  Serious: No
  Sender: FDA-Public Use
  Company Number: US-009507513-1208USA011185

PATIENT
  Age: 53 Year
  Sex: Female

DRUGS (5)
  1. NASONEX [Suspect]
     Indication: SINUSITIS
     Dosage: UNK
     Route: 045
     Dates: start: 20120820
  2. LEXAPRO [Concomitant]
  3. KLONOPIN [Concomitant]
  4. SEROQUEL [Concomitant]
  5. AZITHROMYCIN [Concomitant]

REACTIONS (2)
  - Pharyngeal erythema [Not Recovered/Not Resolved]
  - Dysphagia [Not Recovered/Not Resolved]
